FAERS Safety Report 23286405 (Version 1)
Quarter: 2023Q4

REPORT INFORMATION
  Report Type: Other
  Country: None (occurrence: TR)
  Receive Date: 20231212
  Receipt Date: 20231212
  Transmission Date: 20240110
  Serious: Yes (Life-Threatening, Hospitalization, Other)
  Sender: FDA-Public Use
  Company Number: TR-CorePharma LLC-2149246

PATIENT
  Age: 15 Year
  Sex: Female

DRUGS (1)
  1. AMLODIPINE BESYLATE [Suspect]
     Active Substance: AMLODIPINE BESYLATE
     Indication: Product used for unknown indication
     Route: 048

REACTIONS (9)
  - Distributive shock [Recovering/Resolving]
  - Vasoplegia syndrome [Unknown]
  - Lethargy [Unknown]
  - Peripheral coldness [Unknown]
  - Lactic acidosis [Recovering/Resolving]
  - Oliguria [Recovering/Resolving]
  - Toxicity to various agents [Unknown]
  - Hypotension [Recovering/Resolving]
  - Intentional overdose [Unknown]
